FAERS Safety Report 5677498-4 (Version None)
Quarter: 2008Q1

REPORT INFORMATION
  Report Type: 
  Country: None (occurrence: None)
  Receive Date: 20080324
  Receipt Date: 20080313
  Transmission Date: 20080703
  Serious: Yes (Other)
  Sender: FDA-Public Use
  Company Number: JP-ROCHE-547057

PATIENT
  Age: 3 Year
  Sex: Male
  Weight: 16 kg

DRUGS (3)
  1. TAMIFLU [Suspect]
     Dosage: FORM: DRY SYRUP 3%.
     Route: 048
     Dates: start: 20080210, end: 20080210
  2. MUCODYNE [Concomitant]
     Route: 048
     Dates: start: 20080210, end: 20080213
  3. ZESULAN [Concomitant]
     Dosage: FORMULATION: ORAL FORMULATION (NOT OTHERWISE SPECIFIED)
     Route: 048
     Dates: start: 20080210, end: 20080213

REACTIONS (1)
  - CONVULSION [None]
